FAERS Safety Report 4968566-0 (Version None)
Quarter: 2006Q2

REPORT INFORMATION
  Report Type: 
  Country: None (occurrence: None)
  Receive Date: 20060411
  Receipt Date: 20060330
  Transmission Date: 20061013
  Serious: Yes (Hospitalization)
  Sender: FDA-Public Use
  Company Number: JP-JNJFOC-20031203938

PATIENT
  Sex: Female
  Weight: 45.5 kg

DRUGS (32)
  1. REMICADE [Suspect]
     Route: 041
     Dates: start: 20031009
  2. REMICADE [Suspect]
     Route: 041
     Dates: start: 20031009
  3. REMICADE [Suspect]
     Route: 041
     Dates: start: 20031009
  4. REMICADE [Suspect]
     Route: 041
     Dates: start: 20031009
  5. REMICADE [Suspect]
     Route: 041
     Dates: start: 20031009
  6. REMICADE [Suspect]
     Indication: RHEUMATOID ARTHRITIS
     Route: 041
     Dates: start: 20031009
  7. RHEUMATREX [Suspect]
     Route: 048
  8. RHEUMATREX [Suspect]
     Indication: RHEUMATOID ARTHRITIS
     Route: 048
  9. PREDNISOLONE [Suspect]
     Route: 048
  10. PREDNISOLONE [Suspect]
     Route: 048
  11. PREDNISOLONE [Suspect]
     Route: 048
  12. PREDNISOLONE [Suspect]
     Route: 048
  13. PREDNISOLONE [Suspect]
     Indication: RHEUMATOID ARTHRITIS
     Route: 048
  14. ISCOTIN [Concomitant]
     Route: 048
  15. ISCOTIN [Concomitant]
     Route: 048
  16. BAKTAR [Concomitant]
     Route: 048
  17. BAKTAR [Concomitant]
     Route: 048
  18. LIMETHASON [Concomitant]
     Indication: RHEUMATOID ARTHRITIS
     Route: 042
  19. AZULFIDINE EN-TABS [Concomitant]
     Indication: RHEUMATOID ARTHRITIS
     Route: 048
  20. MOBIC [Concomitant]
     Indication: RHEUMATOID ARTHRITIS
     Route: 048
  21. VOLTAREN [Concomitant]
     Indication: RHEUMATOID ARTHRITIS
     Route: 048
  22. FOLIAMIN [Concomitant]
     Route: 048
  23. SCITECH [Concomitant]
     Route: 048
  24. TAKEPRON [Concomitant]
     Route: 048
  25. PYRIDOXAL [Concomitant]
     Route: 048
  26. CHILARGEN [Concomitant]
     Route: 048
  27. BLOPRESS [Concomitant]
     Route: 048
  28. ACTONEL [Concomitant]
     Route: 048
  29. SUPERIOR [Concomitant]
     Route: 048
  30. CYTOTEC [Concomitant]
     Dosage: 600 RG DAILY
     Route: 048
  31. THYRADIN S [Concomitant]
     Route: 048
  32. SPELEAR [Concomitant]
     Route: 048

REACTIONS (2)
  - ATYPICAL MYCOBACTERIAL INFECTION [None]
  - THERAPEUTIC RESPONSE DECREASED [None]
